FAERS Safety Report 5380749-7 (Version None)
Quarter: 2007Q3

REPORT INFORMATION
  Report Type: 
  Country: None (occurrence: None)
  Receive Date: 20070706
  Receipt Date: 20070702
  Transmission Date: 20080115
  Serious: Yes (Other)
  Sender: FDA-Public Use
  Company Number: A0644283A

PATIENT
  Age: 81 Year
  Sex: Male

DRUGS (3)
  1. AVODART [Suspect]
     Indication: BENIGN PROSTATIC HYPERPLASIA
     Dosage: .5MG PER DAY
     Route: 048
     Dates: end: 20070101
  2. LISINOPRIL [Concomitant]
  3. DIABETES MEDICATION [Concomitant]

REACTIONS (2)
  - PHIMOSIS [None]
  - URINE FLOW DECREASED [None]
